FAERS Safety Report 10161981 (Version 1)
Quarter: 2014Q2

REPORT INFORMATION
  Report Type: Spontaneous
  Country: US (occurrence: None)
  Receive Date: 20140508
  Receipt Date: 20140508
  Transmission Date: 20141212
  Serious: No
  Sender: FDA-Public Use
  Company Number: None

PATIENT
  Sex: Male
  Weight: 72.58 kg

DRUGS (1)
  1. DILANTIN [Suspect]
     Indication: CONVULSION
     Dosage: 100 MG TID PO
     Route: 048
     Dates: end: 2011

REACTIONS (3)
  - Product substitution issue [None]
  - Anticonvulsant drug level abnormal [None]
  - Convulsion [None]
